FAERS Safety Report 10592389 (Version 1)
Quarter: 2014Q4

REPORT INFORMATION
  Report Type: Spontaneous
  Country: US (occurrence: None)
  Receive Date: 20141117
  Receipt Date: 20141117
  Transmission Date: 20150529
  Serious: No
  Sender: FDA-Public Use
  Company Number: 2014-00097

PATIENT
  Age: 61 Year
  Sex: Female
  Weight: 48.54 kg

DRUGS (6)
  1. TRAZODONE [Concomitant]
     Active Substance: TRAZODONE HYDROCHLORIDE
  2. AMBIEN [Concomitant]
     Active Substance: ZOLPIDEM TARTRATE
  3. ZICAM COLD REMEDY [Suspect]
     Active Substance: ZINC ACETATE\ZINC GLUCONATE
     Indication: NASOPHARYNGITIS
     Route: 048
     Dates: start: 20141101, end: 20141103
  4. ZICAM COLD REMEDY [Suspect]
     Active Substance: ZINC ACETATE\ZINC GLUCONATE
     Indication: PROPHYLAXIS
     Route: 048
     Dates: start: 20141101, end: 20141103
  5. VITAMINS [Concomitant]
     Active Substance: VITAMINS
  6. LEVOTHYROXINE [Concomitant]
     Active Substance: LEVOTHYROXINE

REACTIONS (1)
  - Ageusia [None]

NARRATIVE: CASE EVENT DATE: 20141103
